FAERS Safety Report 25078451 (Version 1)
Quarter: 2025Q1

REPORT INFORMATION
  Report Type: Spontaneous
  Country: GB (occurrence: GB)
  Receive Date: 20250314
  Receipt Date: 20250314
  Transmission Date: 20250409
  Serious: Yes (Disabling, Other)
  Sender: AUROBINDO
  Company Number: GB-MHRA-TPP26966140C7439958YC1740585469117

PATIENT
  Age: 19 Year
  Sex: Female
  Weight: 95 kg

DRUGS (4)
  1. DULOXETINE HYDROCHLORIDE [Suspect]
     Active Substance: DULOXETINE HYDROCHLORIDE
     Indication: Product used for unknown indication
     Dosage: 30 MILLIGRAM, ONCE A DAY (ONE TABLET DAILY)
     Route: 065
     Dates: start: 20250224
  2. DESOGESTREL [Concomitant]
     Active Substance: DESOGESTREL
     Indication: Ill-defined disorder
     Route: 065
     Dates: start: 20241219
  3. PENICILLIN V [Concomitant]
     Active Substance: PENICILLIN V
     Indication: Ill-defined disorder
     Dosage: 2 DOSAGE FORM, FOUR TIMES/DAY (TAKE TWO   4 TIMES/DAY FOR 10 DAYS)
     Route: 065
     Dates: start: 20250107
  4. LANSOPRAZOLE [Concomitant]
     Active Substance: LANSOPRAZOLE
     Indication: Ill-defined disorder
     Route: 065
     Dates: start: 20240909

REACTIONS (4)
  - Swelling face [Recovered/Resolved]
  - Somnolence [Recovering/Resolving]
  - Coordination abnormal [Unknown]
  - Mydriasis [Unknown]
